FAERS Safety Report 8114596-X (Version None)
Quarter: 2012Q1

REPORT INFORMATION
  Report Type: 
  Country: None (occurrence: None)
  Receive Date: 20120206
  Receipt Date: 20120203
  Transmission Date: 20120608
  Serious: No
  Sender: FDA-Public Use
  Company Number: US-PFIZER INC-2012030790

PATIENT
  Sex: Female

DRUGS (2)
  1. CONCERTA [Concomitant]
     Dosage: UNK
  2. ZOLOFT [Suspect]
     Indication: ANXIETY
     Dosage: 50 MG, 1X/DAY
     Route: 048
     Dates: start: 20111101, end: 20120203

REACTIONS (1)
  - CONTUSION [None]
